FAERS Safety Report 5789457-1 (Version None)
Quarter: 2008Q2

REPORT INFORMATION
  Report Type: 
  Country: None (occurrence: None)
  Receive Date: 20080626
  Receipt Date: 20080514
  Transmission Date: 20081010
  Serious: No
  Sender: FDA-Public Use
  Company Number: US-ASTRAZENECA-2008UW00814

PATIENT
  Age: 9 Month
  Sex: Male
  Weight: 11.3 kg

DRUGS (3)
  1. PULMICORT RESPULES [Suspect]
     Indication: BRONCHIOLITIS
     Dosage: 0.5 MG/2 ML DAILY
     Route: 055
  2. PULMICORT RESPULES [Suspect]
     Dosage: 0.25 MG/2 ML DAILY
     Route: 055
  3. SINGULAIR [Concomitant]

REACTIONS (2)
  - EPISTAXIS [None]
  - PSYCHOMOTOR HYPERACTIVITY [None]
